FAERS Safety Report 5063685-5 (Version None)
Quarter: 2006Q3

REPORT INFORMATION
  Report Type: 
  Country: None (occurrence: None)
  Receive Date: 20060724
  Receipt Date: 20060707
  Transmission Date: 20061208
  Serious: Yes (Other)
  Sender: FDA-Public Use
  Company Number: USA-2006-0024542

PATIENT
  Age: 17 Year
  Sex: Female

DRUGS (1)
  1. CEFDITOREN PIVOXIL (CEFDITOREN PIVOXIL) [Suspect]
     Indication: DRUG USE FOR UNKNOWN INDICATION
     Dates: start: 20030501

REACTIONS (1)
  - OCULOMUCOCUTANEOUS SYNDROME [None]
